FAERS Safety Report 25675702 (Version 1)
Quarter: 2025Q3

REPORT INFORMATION
  Report Type: Report from Study
  Country: US (occurrence: US)
  Receive Date: 20250813
  Receipt Date: 20250813
  Transmission Date: 20251020
  Serious: Yes (Congenital Anomaly)
  Sender: ROCHE
  Company Number: US-ROCHE-10000362907

PATIENT

DRUGS (1)
  1. CELLCEPT [Suspect]
     Active Substance: MYCOPHENOLATE MOFETIL
     Indication: Product used for unknown indication
     Route: 064

REACTIONS (2)
  - Congenital cardiovascular anomaly [Unknown]
  - Foetal exposure during pregnancy [Unknown]
